FAERS Safety Report 7277762-1 (Version None)
Quarter: 2011Q1

REPORT INFORMATION
  Report Type: 
  Country: None (occurrence: None)
  Receive Date: 20110207
  Receipt Date: 20100218
  Transmission Date: 20110831
  Serious: No
  Sender: FDA-Public Use
  Company Number: A0845222A

PATIENT
  Age: 16 Year
  Sex: Male

DRUGS (2)
  1. OLUX E [Suspect]
     Indication: DRY SKIN
     Route: 061
  2. HYDROCODONE BITARTRATE [Concomitant]
     Indication: PAIN

REACTIONS (4)
  - DRUG ADMINISTRATION ERROR [None]
  - SKIN DISORDER [None]
  - RASH [None]
  - DERMATITIS [None]
